FAERS Safety Report 25886628 (Version 1)
Quarter: 2025Q4

REPORT INFORMATION
  Report Type: Spontaneous
  Country: EU (occurrence: EU)
  Receive Date: 20251006
  Receipt Date: 20251006
  Transmission Date: 20260117
  Serious: Yes (Death, Other)
  Sender: TAKEDA
  Company Number: EU-TAKEDA-2025TUS057059

PATIENT
  Age: 66 Year
  Sex: Female

DRUGS (1)
  1. FRUZAQLA [Suspect]
     Active Substance: FRUQUINTINIB
     Indication: Adenocarcinoma of colon
     Dosage: 5 MILLIGRAM, QD

REACTIONS (4)
  - Adenocarcinoma of colon [Fatal]
  - Skin toxicity [Recovered/Resolved]
  - Hepatotoxicity [Recovered/Resolved]
  - General physical health deterioration [Unknown]

NARRATIVE: CASE EVENT DATE: 20250513
